FAERS Safety Report 15665028 (Version 3)
Quarter: 2019Q1

REPORT INFORMATION
  Report Type: Spontaneous
  Country: US (occurrence: US)
  Receive Date: 20181128
  Receipt Date: 20190220
  Transmission Date: 20190417
  Serious: No
  Sender: FDA-Public Use
  Company Number: US-ALKERMES INC.-ALK-2018-006491

PATIENT
  Age: 57 Year
  Sex: Female
  Weight: 51.7 kg

DRUGS (1)
  1. VIVITROL [Suspect]
     Active Substance: NALTREXONE
     Indication: ALCOHOLISM
     Dosage: 380 MG, QMO
     Route: 030
     Dates: start: 20181112, end: 20181112

REACTIONS (9)
  - Loss of personal independence in daily activities [Recovered/Resolved]
  - Somnolence [Recovered/Resolved]
  - Sedation [Recovered/Resolved]
  - Asthenia [Recovered/Resolved]
  - Gait disturbance [Recovered/Resolved]
  - Dehydration [Recovered/Resolved]
  - Toxicity to various agents [Recovered/Resolved]
  - Drug use disorder [Recovered/Resolved]
  - Slow speech [Recovered/Resolved]

NARRATIVE: CASE EVENT DATE: 201811
